FAERS Safety Report 12367537 (Version 1)
Quarter: 2016Q2

REPORT INFORMATION
  Report Type: Spontaneous
  Country: NL (occurrence: NL)
  Receive Date: 20160513
  Receipt Date: 20160513
  Transmission Date: 20160815
  Serious: Yes (Other)
  Sender: FDA-Public Use
  Company Number: NL-TEVA-658179ISR

PATIENT

DRUGS (1)
  1. TOPOSIN, CONCENTRAAT VOOR OPLOSSING VOOR INTRAVENEUZE INFUSIE 20 MG/ML [Suspect]
     Active Substance: ETOPOSIDE
     Dosage: 20 MG/ML
     Route: 051

REACTIONS (2)
  - Vein discolouration [Unknown]
  - Thrombosis [Unknown]
